FAERS Safety Report 18935756 (Version 1)
Quarter: 2021Q1

REPORT INFORMATION
  Report Type: Spontaneous
  Country: US (occurrence: US)
  Receive Date: 20210225
  Receipt Date: 20210225
  Transmission Date: 20210420
  Serious: No
  Sender: FDA-Public Use
  Company Number: US-APOTEX-2021AP003729

PATIENT
  Age: 74 Year
  Sex: Male

DRUGS (6)
  1. DULOXETINE. [Concomitant]
     Active Substance: DULOXETINE
     Indication: PSYCHOTIC DISORDER
  2. DULOXETINE. [Concomitant]
     Active Substance: DULOXETINE
     Indication: MOOD SWINGS
     Dosage: 60 MILLIGRAM, QD
     Route: 065
     Dates: start: 2005
  3. CLONAZEPAM. [Concomitant]
     Active Substance: CLONAZEPAM
     Indication: PSYCHOTIC DISORDER
  4. OLANZAPINE. [Suspect]
     Active Substance: OLANZAPINE
     Indication: PSYCHOTIC DISORDER
  5. OLANZAPINE. [Suspect]
     Active Substance: OLANZAPINE
     Indication: MOOD SWINGS
     Dosage: 10 MILLIGRAM, QD
     Route: 065
     Dates: start: 2005
  6. CLONAZEPAM. [Concomitant]
     Active Substance: CLONAZEPAM
     Indication: MOOD SWINGS
     Dosage: 0.5 MILLIGRAM, QD
     Route: 065
     Dates: start: 2005

REACTIONS (1)
  - Dysphagia [Not Recovered/Not Resolved]
